FAERS Safety Report 15902572 (Version 8)
Quarter: 2019Q2

REPORT INFORMATION
  Report Type: Report from Study
  Country: None (occurrence: US)
  Receive Date: 20190201
  Receipt Date: 20190620
  Transmission Date: 20190711
  Serious: Yes (Hospitalization, Other)
  Sender: FDA-Public Use
  Company Number: US-ABBVIE-19K-163-2639738-00

PATIENT
  Age: 57 Year
  Sex: Male
  Weight: 90.8 kg

DRUGS (11)
  1. VENCLEXTA [Suspect]
     Active Substance: VENETOCLAX
     Route: 048
  2. VENCLEXTA [Suspect]
     Active Substance: VENETOCLAX
     Route: 048
     Dates: start: 20181228
  3. VENCLEXTA [Suspect]
     Active Substance: VENETOCLAX
     Route: 048
     Dates: start: 201812, end: 201812
  4. BACTRIM [Concomitant]
     Active Substance: SULFAMETHOXAZOLE\TRIMETHOPRIM
     Indication: PROPHYLAXIS
     Route: 048
  5. PREDNISONE. [Concomitant]
     Active Substance: PREDNISONE
     Indication: HAEMOGLOBIN DECREASED
     Route: 048
  6. VENCLEXTA [Suspect]
     Active Substance: VENETOCLAX
     Route: 048
     Dates: start: 20190118, end: 201901
  7. LEVAQUIN [Concomitant]
     Active Substance: LEVOFLOXACIN
     Indication: PROPHYLAXIS
  8. ACYCLOVIR. [Concomitant]
     Active Substance: ACYCLOVIR
     Indication: PROPHYLAXIS
     Route: 048
  9. VENTOLIN [Concomitant]
     Active Substance: ALBUTEROL SULFATE
     Indication: ASTHMA
  10. VENCLEXTA [Suspect]
     Active Substance: VENETOCLAX
     Indication: CHRONIC LYMPHOCYTIC LEUKAEMIA
     Route: 048
     Dates: start: 20181228, end: 201812
  11. LEVOFLOXACIN. [Concomitant]
     Active Substance: LEVOFLOXACIN
     Indication: PROPHYLAXIS
     Dates: end: 20190222

REACTIONS (31)
  - Haemoglobin decreased [Recovered/Resolved]
  - Asthenia [Not Recovered/Not Resolved]
  - Heart rate increased [Not Recovered/Not Resolved]
  - Neutrophil count decreased [Recovered/Resolved]
  - Platelet count decreased [Recovering/Resolving]
  - Neutrophil count decreased [Not Recovered/Not Resolved]
  - Diarrhoea [Not Recovered/Not Resolved]
  - Lymphocyte count decreased [Not Recovered/Not Resolved]
  - Biopsy bone marrow abnormal [Unknown]
  - Weight increased [Not Recovered/Not Resolved]
  - Platelet count decreased [Recovered/Resolved]
  - White blood cell count decreased [Not Recovered/Not Resolved]
  - Appetite disorder [Unknown]
  - Blood lactate dehydrogenase increased [Recovering/Resolving]
  - Faeces soft [Not Recovered/Not Resolved]
  - Neutropenia [Unknown]
  - Fibrous histiocytoma [Recovered/Resolved]
  - Laboratory test abnormal [Recovering/Resolving]
  - Reticulocyte count decreased [Unknown]
  - Procedural pain [Recovered/Resolved]
  - White blood cell count decreased [Recovered/Resolved]
  - Food intolerance [Not Recovered/Not Resolved]
  - Taste disorder [Unknown]
  - Cytopenia [Not Recovered/Not Resolved]
  - Gait disturbance [Recovered/Resolved]
  - Post procedural fever [Recovered/Resolved]
  - Bowen^s disease [Recovered/Resolved]
  - White blood cell count increased [Recovered/Resolved]
  - Chest pain [Not Recovered/Not Resolved]
  - Oral disorder [Recovered/Resolved]
  - Haemoglobin decreased [Recovered/Resolved]

NARRATIVE: CASE EVENT DATE: 201812
